FAERS Safety Report 7746909-2 (Version None)
Quarter: 2011Q3

REPORT INFORMATION
  Report Type: 
  Country: None (occurrence: None)
  Receive Date: 20110913
  Receipt Date: 20110830
  Transmission Date: 20111222
  Serious: Yes (Hospitalization, Other)
  Sender: FDA-Public Use
  Company Number: PHHY2011BR77370

PATIENT
  Sex: Male

DRUGS (1)
  1. DIOVAN [Suspect]
     Dosage: 160 MG, QD
     Route: 048
     Dates: start: 20050101, end: 20100101

REACTIONS (3)
  - BLOOD PRESSURE ABNORMAL [None]
  - RENAL DISORDER [None]
  - ABDOMINAL PAIN [None]
